FAERS Safety Report 4612720-4 (Version None)
Quarter: 2005Q1

REPORT INFORMATION
  Report Type: 
  Country: None (occurrence: None)
  Receive Date: 20050317
  Receipt Date: 20050317
  Transmission Date: 20050727
  Serious: Yes (Hospitalization)
  Sender: FDA-Public Use
  Company Number: None

PATIENT
  Age: 79 Year
  Sex: Male
  Weight: 75 kg

DRUGS (5)
  1. WARFARIN [Suspect]
     Indication: ATRIAL FIBRILLATION
     Dosage: INR ADJUSTED  QHS  ORAL
     Route: 048
     Dates: start: 20040924, end: 20041212
  2. OLANZAPINE [Concomitant]
  3. LOVASTATIN [Concomitant]
  4. METOPROLOL SUCCINATE [Concomitant]
  5. DIGOXIN [Concomitant]

REACTIONS (5)
  - COLON CANCER [None]
  - DUODENITIS [None]
  - EROSIVE OESOPHAGITIS [None]
  - GASTRITIS [None]
  - GASTROINTESTINAL EROSION [None]
